FAERS Safety Report 11223586 (Version 2)
Quarter: 2015Q3

REPORT INFORMATION
  Report Type: Spontaneous
  Country: US (occurrence: US)
  Receive Date: 20150629
  Receipt Date: 20150713
  Transmission Date: 20151125
  Serious: Yes (Hospitalization, Other)
  Sender: FDA-Public Use
  Company Number: US-AUROBINDO-AUR-APL-2015-05348

PATIENT
  Sex: Female

DRUGS (10)
  1. RAMIPRIL 5MG [Suspect]
     Active Substance: RAMIPRIL
     Indication: BLOOD PRESSURE MEASUREMENT
     Dosage: 5 MG, ONCE A DAY
     Route: 065
     Dates: start: 2007
  2. PREMARIN [Suspect]
     Active Substance: ESTROGENS, CONJUGATED
     Indication: HYSTERECTOMY
  3. PREMARIN [Suspect]
     Active Substance: ESTROGENS, CONJUGATED
     Indication: HORMONE REPLACEMENT THERAPY
  4. PREMARIN [Suspect]
     Active Substance: ESTROGENS, CONJUGATED
     Indication: VULVOVAGINAL DRYNESS
  5. NEXIUM [Suspect]
     Active Substance: ESOMEPRAZOLE MAGNESIUM
     Indication: ABDOMINAL PAIN UPPER
     Dosage: 40 MG, ONCE A DAY
     Route: 065
     Dates: start: 2010
  6. PREMARIN [Suspect]
     Active Substance: ESTROGENS, CONJUGATED
     Indication: HYPERHIDROSIS
  7. GABAPENTIN 300MG [Suspect]
     Active Substance: GABAPENTIN
     Indication: MUSCLE SPASMS
     Dosage: 300 MG, UNK
     Route: 065
     Dates: start: 2014
  8. PREMARIN [Suspect]
     Active Substance: ESTROGENS, CONJUGATED
     Indication: HOT FLUSH
     Dosage: 1.25 MG, ONCE A DAY
     Route: 065
     Dates: start: 1976
  9. METOPROLOL 25MG [Suspect]
     Active Substance: METOPROLOL
     Indication: BLOOD PRESSURE MEASUREMENT
     Dosage: 25 MG, TWO TIMES A DAY
     Route: 065
     Dates: start: 2014
  10. PEG 3350 [Suspect]
     Active Substance: POLYETHYLENE GLYCOL 3350
     Indication: COLON INJURY
     Dosage: 17 G, DAILY
     Route: 065
     Dates: start: 2012

REACTIONS (4)
  - Amnesia [Recovered/Resolved]
  - Nervousness [Recovered/Resolved]
  - Weight increased [Recovered/Resolved]
  - Mental disorder [Recovered/Resolved]
